FAERS Safety Report 13457397 (Version 1)
Quarter: 2017Q2

REPORT INFORMATION
  Report Type: Spontaneous
  Country: US (occurrence: US)
  Receive Date: 20170419
  Receipt Date: 20170419
  Transmission Date: 20170830
  Serious: Yes (Other)
  Sender: FDA-Public Use
  Company Number: None

PATIENT
  Age: 33 Year
  Sex: Female
  Weight: 13.95 kg

DRUGS (5)
  1. PROBIOTICS [Concomitant]
     Active Substance: PROBIOTICS NOS
  2. ZERTEX [Concomitant]
  3. CLINDOMYCIN [Suspect]
     Active Substance: CLINDAMYCIN
     Indication: SINUSITIS
     Route: 048
     Dates: start: 20170323, end: 20170330
  4. CLINDOMYCIN [Suspect]
     Active Substance: CLINDAMYCIN
     Indication: EAR INFECTION
     Route: 048
     Dates: start: 20170323, end: 20170330
  5. CLINDOMYCIN [Suspect]
     Active Substance: CLINDAMYCIN
     Indication: CONJUNCTIVITIS
     Route: 048
     Dates: start: 20170323, end: 20170330

REACTIONS (2)
  - Rash [None]
  - Diarrhoea [None]

NARRATIVE: CASE EVENT DATE: 20170331
